FAERS Safety Report 16341606 (Version 1)
Quarter: 2019Q2

REPORT INFORMATION
  Report Type: Spontaneous
  Country: EG (occurrence: EG)
  Receive Date: 20190522
  Receipt Date: 20190522
  Transmission Date: 20190711
  Serious: Yes (Other)
  Sender: FDA-Public Use
  Company Number: EG-HIKMA PHARMACEUTICALS USA INC.-EG-H14001-19-03411

PATIENT
  Age: 26 Year
  Sex: Female

DRUGS (2)
  1. ADRICIN (DOXORUBICIN HYDROCHLORIDE) [Suspect]
     Active Substance: DOXORUBICIN HYDROCHLORIDE
     Indication: OSTEOSARCOMA
     Route: 041
     Dates: start: 20180606
  2. PLATINOL [Suspect]
     Active Substance: CISPLATIN
     Indication: OSTEOSARCOMA
     Route: 041
     Dates: start: 20180606

REACTIONS (2)
  - Anaemia [Recovered/Resolved]
  - Drug interaction [Recovered/Resolved]

NARRATIVE: CASE EVENT DATE: 20190125
